FAERS Safety Report 6855033-2 (Version None)
Quarter: 2010Q3

REPORT INFORMATION
  Report Type: 
  Country: None (occurrence: None)
  Receive Date: 20100717
  Receipt Date: 20080421
  Transmission Date: 20110219
  Serious: Yes (Other)
  Sender: FDA-Public Use
  Company Number: US-PFIZER INC-2008001813

PATIENT
  Sex: Male
  Weight: 93.181 kg

DRUGS (1)
  1. CHANTIX [Suspect]
     Dates: start: 20071210

REACTIONS (5)
  - AMNESIA [None]
  - BRADYPHRENIA [None]
  - HEADACHE [None]
  - IMPAIRED DRIVING ABILITY [None]
  - JUDGEMENT IMPAIRED [None]
